FAERS Safety Report 6850594-1 (Version None)
Quarter: 2010Q3

REPORT INFORMATION
  Report Type: 
  Country: None (occurrence: None)
  Receive Date: 20100716
  Receipt Date: 20090324
  Transmission Date: 20110219
  Serious: No
  Sender: FDA-Public Use
  Company Number: US-PFIZER INC-2007086726

PATIENT
  Sex: Female
  Weight: 81.818 kg

DRUGS (2)
  1. CHANTIX [Suspect]
     Indication: SMOKING CESSATION THERAPY
     Dosage: 0.5 MG, 1X/DAY
     Dates: start: 20071001
  2. OXYGEN [Concomitant]
     Dosage: UNK

REACTIONS (3)
  - CONSTIPATION [None]
  - DYSURIA [None]
  - INCORRECT DOSE ADMINISTERED [None]
